FAERS Safety Report 10962266 (Version 1)
Quarter: 2015Q1

REPORT INFORMATION
  Report Type: Spontaneous
  Country: US (occurrence: US)
  Receive Date: 20150327
  Receipt Date: 20150327
  Transmission Date: 20150721
  Serious: No
  Sender: FDA-Public Use
  Company Number: US-SHIRE-US201502713

PATIENT
  Age: 16 Year
  Sex: Female
  Weight: 52.15 kg

DRUGS (1)
  1. VYVANSE [Suspect]
     Active Substance: LISDEXAMFETAMINE DIMESYLATE
     Indication: ATTENTION DEFICIT/HYPERACTIVITY DISORDER
     Dosage: 30 MG, 1X/DAY:QD
     Route: 048
     Dates: start: 201503, end: 201503

REACTIONS (2)
  - Heart rate increased [Unknown]
  - Hyperventilation [Unknown]

NARRATIVE: CASE EVENT DATE: 201503
